FAERS Safety Report 15608998 (Version 1)
Quarter: 2018Q4

REPORT INFORMATION
  Report Type: Spontaneous
  Country: US (occurrence: US)
  Receive Date: 20181112
  Receipt Date: 20181112
  Transmission Date: 20190205
  Serious: Yes (Life-Threatening, Hospitalization, Other)
  Sender: FDA-Public Use
  Company Number: US-ELI_LILLY_AND_COMPANY-US201811002802

PATIENT
  Age: 79 Year
  Sex: Male

DRUGS (2)
  1. LARTRUVO [Suspect]
     Active Substance: OLARATUMAB
     Indication: ANGIOSARCOMA METASTATIC
     Dosage: 1080 MG, UNKNOWN
     Route: 042
     Dates: start: 20181030, end: 20181030
  2. DOXORUBICIN [Concomitant]
     Active Substance: DOXORUBICIN
     Indication: ANGIOSARCOMA METASTATIC
     Dosage: 113 MG, UNKNOWN
     Route: 065
     Dates: start: 20181030, end: 20181030

REACTIONS (1)
  - Anaphylactic reaction [Recovered/Resolved]

NARRATIVE: CASE EVENT DATE: 20181030
